FAERS Safety Report 11138547 (Version 1)
Quarter: 2015Q2

REPORT INFORMATION
  Report Type: Spontaneous
  Country: US (occurrence: US)
  Receive Date: 20150527
  Receipt Date: 20150527
  Transmission Date: 20150821
  Serious: Yes (Other)
  Sender: FDA-Public Use
  Company Number: US-TEVA-543664USA

PATIENT
  Age: 75 Year
  Sex: Female

DRUGS (2)
  1. SOTALOL. [Suspect]
     Active Substance: SOTALOL
     Dosage: 240 MILLIGRAM DAILY;
     Route: 048
     Dates: start: 201502
  2. SOTALOL. [Suspect]
     Active Substance: SOTALOL
     Indication: ATRIAL FIBRILLATION
     Dosage: 80 MILLIGRAM DAILY;
     Route: 048
     Dates: start: 201409, end: 20150223

REACTIONS (4)
  - Atrial fibrillation [Recovered/Resolved]
  - Chest discomfort [Not Recovered/Not Resolved]
  - Peripheral swelling [Not Recovered/Not Resolved]
  - Product substitution issue [Unknown]

NARRATIVE: CASE EVENT DATE: 201502
